FAERS Safety Report 5924582-3 (Version None)
Quarter: 2008Q4

REPORT INFORMATION
  Report Type: 
  Country: None (occurrence: None)
  Receive Date: 20081020
  Receipt Date: 20081008
  Transmission Date: 20090506
  Serious: Yes (Other)
  Sender: FDA-Public Use
  Company Number: ES-PFIZER INC-2008087150

PATIENT

DRUGS (1)
  1. LYRICA [Suspect]

REACTIONS (1)
  - VISUAL FIELD DEFECT [None]
